FAERS Safety Report 7386023-1 (Version None)
Quarter: 2011Q1

REPORT INFORMATION
  Report Type: 
  Country: None (occurrence: None)
  Receive Date: 20110329
  Receipt Date: 20110329
  Transmission Date: 20110831
  Serious: No
  Sender: FDA-Public Use
  Company Number: None

PATIENT
  Age: 57 Year
  Sex: Female
  Weight: 79.3795 kg

DRUGS (1)
  1. LIVALO [Suspect]
     Indication: BLOOD CHOLESTEROL INCREASED
     Dosage: 1 MG DAILY / EVERY OTHER ORAL 1/2 MG -} 1/4 MG EVERY OTHER DAY ORAL
     Route: 048
     Dates: start: 20110204

REACTIONS (5)
  - FATIGUE [None]
  - FEELING COLD [None]
  - PAIN IN EXTREMITY [None]
  - VISION BLURRED [None]
  - HYPOAESTHESIA [None]
